FAERS Safety Report 18163314 (Version 1)
Quarter: 2020Q3

REPORT INFORMATION
  Report Type: Spontaneous
  Country: US (occurrence: US)
  Receive Date: 20200818
  Receipt Date: 20200818
  Transmission Date: 20201103
  Serious: No
  Sender: FDA-Public Use
  Company Number: US-TEVA-2020-US-1805491

PATIENT
  Sex: Female

DRUGS (2)
  1. AJOVY [Suspect]
     Active Substance: FREMANEZUMAB-VFRM
     Indication: MIGRAINE
     Dosage: ADMINISTRATION OF FIRST SET OF INJECTIONS
     Dates: start: 2019
  2. AJOVY [Suspect]
     Active Substance: FREMANEZUMAB-VFRM
     Dosage: SECOND SET OF INJECTIONS WERE ADMINISTERED USING AUTOINJECTOR
     Dates: start: 2019

REACTIONS (2)
  - Injection site bruising [Recovered/Resolved]
  - Injection site pain [Unknown]
